FAERS Safety Report 9749713 (Version 4)
Quarter: 2016Q1

REPORT INFORMATION
  Report Type: Spontaneous
  Country: IT (occurrence: IT)
  Receive Date: 20131212
  Receipt Date: 20160209
  Transmission Date: 20160526
  Serious: Yes (Hospitalization)
  Sender: FDA-Public Use
  Company Number: IT-BRISTOL-MYERS SQUIBB COMPANY-19878610

PATIENT
  Age: 90 Year
  Sex: Female

DRUGS (7)
  1. SERTRALINE HCL [Concomitant]
     Active Substance: SERTRALINE HYDROCHLORIDE
     Indication: PRODUCT USED FOR UNKNOWN INDICATION
     Dosage: 1DF:1 UNIT
     Route: 048
     Dates: start: 20120101, end: 20131028
  2. STILNOX [Concomitant]
     Active Substance: ZOLPIDEM TARTRATE
     Indication: DEPRESSION
     Dosage: 1DF:1 UNIT  TABS
     Route: 048
     Dates: start: 20120101, end: 20131028
  3. ISOPTIN [Concomitant]
     Active Substance: VERAPAMIL HYDROCHLORIDE
     Indication: PRODUCT USED FOR UNKNOWN INDICATION
     Dosage: 1UNIT  TABS
     Route: 048
     Dates: start: 20120101, end: 20131028
  4. MOVICOL [Concomitant]
     Active Substance: POLYETHYLENE GLYCOL 3350\POTASSIUM CHLORIDE\SODIUM BICARBONATE\SODIUM CHLORIDE
     Indication: PRODUCT USED FOR UNKNOWN INDICATION
     Dosage: ORAL SOLUTION POWDER  1DF:13.8G UNIT
     Route: 048
     Dates: start: 20120101, end: 20131028
  5. COUMADIN [Suspect]
     Active Substance: WARFARIN SODIUM
     Indication: ATRIAL FIBRILLATION
     Dosage: 1DF:1 UNIT
     Route: 048
     Dates: start: 20120101, end: 20131028
  6. LASIX [Concomitant]
     Active Substance: FUROSEMIDE
     Indication: HYPERTENSION
     Dosage: 1DF: 818UNIT
     Route: 048
     Dates: start: 20120101, end: 20131028
  7. PEPTAZOL [Concomitant]
     Active Substance: PANTOPRAZOLE SODIUM
     Indication: PEPTIC ULCER
     Dosage: 1DF:1 UNIT   TABS
     Route: 048
     Dates: start: 20120101, end: 20131028

REACTIONS (3)
  - Contusion [Recovered/Resolved]
  - Off label use [Unknown]
  - Oedema peripheral [Recovered/Resolved]

NARRATIVE: CASE EVENT DATE: 20131028
